FAERS Safety Report 16158527 (Version 2)
Quarter: 2020Q4

REPORT INFORMATION
  Report Type: Spontaneous
  Country: AT (occurrence: AT)
  Receive Date: 20190404
  Receipt Date: 20201006
  Transmission Date: 20210113
  Serious: Yes (Other)
  Sender: FDA-Public Use
  Company Number: AT-MYLANLABS-2019M1030466

PATIENT
  Age: 44 Year

DRUGS (8)
  1. ROPINIROLE. [Suspect]
     Active Substance: ROPINIROLE
     Indication: PARKINSON^S DISEASE
     Dosage: DAILY DOSAGE OF A MAXIMUM OF 24 MG
     Route: 065
  2. APOMORPHIN [Concomitant]
     Active Substance: APOMORPHINE HYDROCHLORIDE
     Indication: PARKINSON^S DISEASE
     Dosage: INITIAL ADMINISTRATION OF 1 MG APOMORPHINE; A TOTAL DOSE OF 4 MG
     Route: 058
  3. RASAGILINE MESILATE [Suspect]
     Active Substance: RASAGILINE MESYLATE
     Indication: PARKINSON^S DISEASE
     Dosage: UNK
     Route: 065
  4. LEVODOPA [Concomitant]
     Active Substance: LEVODOPA
     Indication: PARKINSON^S DISEASE
     Dosage: 24 MILLIGRAM, QD
  5. ROTIGOTINE [Concomitant]
     Active Substance: ROTIGOTINE
     Dosage: 7 MG IN TOTAL
  6. ROTIGOTINE [Concomitant]
     Active Substance: ROTIGOTINE
     Indication: PARKINSON^S DISEASE
     Dosage: 24 MILLIGRAM, QD
  7. DOMPERIDONE [Concomitant]
     Active Substance: DOMPERIDONE
     Indication: PROPHYLAXIS
     Dosage: 3 X 10 MG
  8. AMANTADINE. [Concomitant]
     Active Substance: AMANTADINE HYDROCHLORIDE
     Indication: PARKINSON^S DISEASE
     Dosage: 100 MILLIGRAM

REACTIONS (9)
  - Therapeutic response decreased [Unknown]
  - Middle insomnia [Unknown]
  - On and off phenomenon [Unknown]
  - Anxiety [Unknown]
  - Gait inability [Unknown]
  - Impulse-control disorder [Unknown]
  - Muscle spasms [Unknown]
  - Depression [Unknown]
  - Gambling disorder [Unknown]
